FAERS Safety Report 5352281-8 (Version None)
Quarter: 2007Q2

REPORT INFORMATION
  Report Type: 
  Country: None (occurrence: None)
  Receive Date: 20070611
  Receipt Date: 20070530
  Transmission Date: 20071010
  Serious: Yes (Hospitalization)
  Sender: FDA-Public Use
  Company Number: PHBS2007JP08939

PATIENT
  Age: 74 Year
  Sex: Male

DRUGS (4)
  1. TEGRETOL [Suspect]
     Indication: POST HERPETIC NEURALGIA
     Dosage: 50 MG/DAY
     Route: 048
     Dates: start: 20050905, end: 20051007
  2. MEXILETINE HYDROCHLORIDE [Suspect]
     Dosage: 150 MG/DAY
     Route: 048
  3. TRYPTANOL [Suspect]
     Dosage: 30 MG/DAY
     Route: 048
  4. LOXOPROFEN SODIUM [Suspect]
     Dosage: 120 MG/DAY
     Route: 048

REACTIONS (2)
  - ERYTHEMA [None]
  - ERYTHEMA MULTIFORME [None]
